FAERS Safety Report 13539425 (Version 1)
Quarter: 2017Q2

REPORT INFORMATION
  Report Type: Spontaneous
  Country: US (occurrence: US)
  Receive Date: 20170512
  Receipt Date: 20170512
  Transmission Date: 20170830
  Serious: No
  Sender: FDA-Public Use
  Company Number: US-PFIZER INC-2017205981

PATIENT
  Age: 51 Year
  Sex: Female

DRUGS (2)
  1. AFINITOR [Suspect]
     Active Substance: EVEROLIMUS
     Dosage: UNK
  2. IBRANCE [Suspect]
     Active Substance: PALBOCICLIB
     Indication: BREAST CANCER FEMALE
     Dosage: UNK, FOR 17 MONTHS

REACTIONS (7)
  - Palpitations [Unknown]
  - Depression [Unknown]
  - Tumour marker increased [Unknown]
  - Arthralgia [Unknown]
  - Chest pain [Unknown]
  - Gait disturbance [Unknown]
  - Headache [Unknown]
